FAERS Safety Report 8430162-0 (Version None)
Quarter: 2012Q2

REPORT INFORMATION
  Report Type: 
  Country: None (occurrence: None)
  Receive Date: 20120612
  Receipt Date: 20120606
  Transmission Date: 20120825
  Serious: No
  Sender: FDA-Public Use
  Company Number: US-ASTRAZENECA-2012SE38091

PATIENT
  Age: 59 Year
  Sex: Female
  Weight: 89.8 kg

DRUGS (6)
  1. ABILIFY [Concomitant]
  2. QUETIAPINE FUMARATE [Suspect]
     Indication: SLEEP DISORDER
     Dosage: GENERIC
     Route: 048
     Dates: start: 20120201
  3. VALIUM [Concomitant]
  4. QUETIAPINE FUMARATE [Suspect]
     Indication: DEPRESSION
     Dosage: GENERIC
     Route: 048
     Dates: start: 20120201
  5. VALIUM [Concomitant]
  6. PRISTIQ [Concomitant]
     Dosage: DAILY

REACTIONS (14)
  - FEELING ABNORMAL [None]
  - HALLUCINATION, VISUAL [None]
  - NAUSEA [None]
  - HYPERSENSITIVITY [None]
  - THINKING ABNORMAL [None]
  - DRUG INEFFECTIVE [None]
  - HALLUCINATIONS, MIXED [None]
  - IRRITABILITY [None]
  - VOMITING [None]
  - DEPRESSED MOOD [None]
  - EMOTIONAL POVERTY [None]
  - DEPRESSION [None]
  - APATHY [None]
  - CONFUSIONAL STATE [None]
